FAERS Safety Report 4987108-7 (Version None)
Quarter: 2006Q2

REPORT INFORMATION
  Report Type: 
  Country: None (occurrence: None)
  Receive Date: 20060501
  Receipt Date: 20060419
  Transmission Date: 20061013
  Serious: Yes (Hospitalization, Other)
  Sender: FDA-Public Use
  Company Number: US-JNJFOC-20060404861

PATIENT
  Sex: Female
  Weight: 92.99 kg

DRUGS (8)
  1. FENTANYL TRANSDERMAL SYSTEM [Suspect]
     Route: 062
  2. EFFEXOR [Concomitant]
     Indication: DEPRESSION
     Route: 048
  3. KLONOPIN [Concomitant]
     Route: 048
  4. KLONOPIN [Concomitant]
     Indication: ANXIETY
     Route: 048
  5. MOTRIN [Concomitant]
     Indication: ARTHRITIS
     Route: 048
  6. PERCOCET [Concomitant]
     Route: 048
  7. PERCOCET [Concomitant]
     Indication: PAIN
     Dosage: OXYCODONE HYDROCHLORIDE MG MG/ACETAMINOPHEN 325 MG, ORAL
     Route: 048
  8. BENTYL [Concomitant]
     Indication: GASTROINTESTINAL DISORDER

REACTIONS (9)
  - ANOREXIA [None]
  - DRUG WITHDRAWAL SYNDROME [None]
  - DYSPNOEA [None]
  - HYPERHIDROSIS [None]
  - MALAISE [None]
  - NERVOUSNESS [None]
  - PAIN [None]
  - PERIPHERAL ARTERY ANEURYSM [None]
  - WEIGHT DECREASED [None]
